FAERS Safety Report 6223938-1 (Version None)
Quarter: 2009Q2

REPORT INFORMATION
  Report Type: 
  Country: None (occurrence: None)
  Receive Date: 20090612
  Receipt Date: 20090304
  Transmission Date: 20091009
  Serious: No
  Sender: FDA-Public Use
  Company Number: US-ABBOTT-09P-163-0560926-00

PATIENT
  Sex: Female

DRUGS (4)
  1. HUMIRA [Suspect]
     Indication: PSORIASIS
     Route: 058
     Dates: start: 20090101
  2. HUMIRA [Suspect]
     Indication: PSORIATIC ARTHROPATHY
     Dates: start: 20090101, end: 20090101
  3. HUMIRA [Suspect]
     Indication: COLITIS ULCERATIVE
  4. DEPAKOTE [Concomitant]
     Indication: BIPOLAR DISORDER
     Route: 048

REACTIONS (10)
  - BRONCHITIS [None]
  - CHEST DISCOMFORT [None]
  - FATIGUE [None]
  - LYMPHADENOPATHY [None]
  - MYALGIA [None]
  - NECK PAIN [None]
  - PHARYNGEAL DISORDER [None]
  - PNEUMONIA VIRAL [None]
  - SINUSITIS [None]
  - WEIGHT DECREASED [None]
